FAERS Safety Report 21185123 (Version 2)
Quarter: 2022Q3

REPORT INFORMATION
  Report Type: Spontaneous
  Country: GB (occurrence: GB)
  Receive Date: 20220808
  Receipt Date: 20220916
  Transmission Date: 20221026
  Serious: Yes (Other)
  Sender: FDA-Public Use
  Company Number: None

PATIENT
  Age: 65 Year
  Sex: Female
  Weight: 67 kg

DRUGS (7)
  1. PAXLOVID [Suspect]
     Active Substance: NIRMATRELVIR\RITONAVIR
     Indication: COVID-19 treatment
     Dosage: 3 MG
     Dates: start: 20220727
  2. PAXLOVID [Suspect]
     Active Substance: NIRMATRELVIR\RITONAVIR
     Dosage: 3 MG
     Dates: start: 20220727, end: 20220731
  3. ATORVASTATIN [Concomitant]
     Active Substance: ATORVASTATIN
     Indication: Blood cholesterol
  4. LISINOPRIL [Concomitant]
     Active Substance: LISINOPRIL
     Indication: Hypertension
  5. METHOTREXATE [Concomitant]
     Active Substance: METHOTREXATE
     Indication: Rheumatoid arthritis
  6. OXYBUTYNIN [Concomitant]
     Active Substance: OXYBUTYNIN
     Indication: Bladder spasm
  7. TOCILIZUMAB [Concomitant]
     Active Substance: TOCILIZUMAB
     Indication: Rheumatoid arthritis

REACTIONS (7)
  - Multiple sclerosis [Unknown]
  - Mobility decreased [Not Recovered/Not Resolved]
  - Condition aggravated [Not Recovered/Not Resolved]
  - COVID-19 [Unknown]
  - Disease recurrence [Unknown]
  - Gait disturbance [Unknown]
  - Product prescribing error [Unknown]

NARRATIVE: CASE EVENT DATE: 20220727
